FAERS Safety Report 16552039 (Version 3)
Quarter: 2019Q3

REPORT INFORMATION
  Report Type: Report from Study
  Country: CN (occurrence: CN)
  Receive Date: 20190710
  Receipt Date: 20190930
  Transmission Date: 20191004
  Serious: Yes (Death, Hospitalization, Other)
  Sender: FDA-Public Use
  Company Number: CN-TAKEDA-2019TUS039891

PATIENT
  Age: 52 Year
  Sex: Male
  Weight: 50 kg

DRUGS (3)
  1. VEDOLIZUMAB [Suspect]
     Active Substance: VEDOLIZUMAB
     Indication: CROHN^S DISEASE
     Dosage: 250 MILLILITER
     Route: 042
     Dates: start: 20181213
  2. PREDNISONE ACETATE [Concomitant]
     Active Substance: PREDNISONE ACETATE
     Indication: CROHN^S DISEASE
     Dosage: 12 MILLIGRAM, BID
     Route: 048
     Dates: start: 201712
  3. AZATHIOPRINE. [Concomitant]
     Active Substance: AZATHIOPRINE
     Indication: CROHN^S DISEASE
     Dosage: 100 MILLIGRAM, QD
     Route: 048
     Dates: start: 201712

REACTIONS (3)
  - Ileal perforation [Fatal]
  - Septic shock [Fatal]
  - Lung infection [Fatal]

NARRATIVE: CASE EVENT DATE: 20190610
